FAERS Safety Report 4403440-X (Version None)
Quarter: 2004Q3

REPORT INFORMATION
  Report Type: 
  Country: None (occurrence: None)
  Receive Date: 20040720
  Receipt Date: 20040707
  Transmission Date: 20050211
  Serious: Yes (Other)
  Sender: FDA-Public Use
  Company Number: HQWYE938408JUL04

PATIENT
  Sex: Female

DRUGS (2)
  1. EFFEXOR XR [Suspect]
     Indication: PANIC ATTACK
     Dosage: 75 MG 1X PER 1 DAY; HALF OF A 75 MG CAPSULE
     Dates: start: 20020101, end: 20020801
  2. EFFEXOR [Suspect]
     Indication: PANIC ATTACK
     Dosage: 25 MG 1X PER 1 DAY; HALF OF A 25 MG TABLET
     Dates: end: 20030201

REACTIONS (10)
  - BLOOD CHOLESTEROL INCREASED [None]
  - CONDITION AGGRAVATED [None]
  - COORDINATION ABNORMAL [None]
  - DRUG DEPENDENCE [None]
  - DRUG WITHDRAWAL SYNDROME [None]
  - DYSARTHRIA [None]
  - PHOTOPSIA [None]
  - TINNITUS [None]
  - TREATMENT NONCOMPLIANCE [None]
  - VISUAL DISTURBANCE [None]
